FAERS Safety Report 12341825 (Version 3)
Quarter: 2016Q3

REPORT INFORMATION
  Report Type: Report from Study
  Country: CA (occurrence: CA)
  Receive Date: 20160506
  Receipt Date: 20160728
  Transmission Date: 20161109
  Serious: Yes (Other)
  Sender: FDA-Public Use
  Company Number: CA-HLSUS-2016-CA-000080

PATIENT
  Age: 51 Year
  Sex: Female

DRUGS (3)
  1. CLOZARIL [Suspect]
     Active Substance: CLOZAPINE
     Route: 048
     Dates: start: 20071012
  2. TAXOL [Concomitant]
     Active Substance: PACLITAXEL
  3. TAMOXIFEN [Concomitant]
     Active Substance: TAMOXIFEN

REACTIONS (2)
  - Agranulocytosis [Unknown]
  - Breast cancer [Unknown]

NARRATIVE: CASE EVENT DATE: 20160428
